FAERS Safety Report 25765643 (Version 2)
Quarter: 2025Q4

REPORT INFORMATION
  Report Type: Report from Study
  Country: US (occurrence: US)
  Receive Date: 20250905
  Receipt Date: 20251114
  Transmission Date: 20260118
  Serious: Yes (Hospitalization)
  Sender: NOVARTIS
  Company Number: US-002147023-NVSC2025US040697

PATIENT
  Age: 37 Year
  Sex: Male

DRUGS (2)
  1. FABHALTA [Suspect]
     Active Substance: IPTACOPAN HYDROCHLORIDE
     Indication: Product used for unknown indication
     Dosage: 200 MG, BID
     Route: 048
     Dates: start: 20250123
  2. FABHALTA [Suspect]
     Active Substance: IPTACOPAN HYDROCHLORIDE
     Dosage: UNK, QMO
     Route: 048

REACTIONS (4)
  - Ill-defined disorder [Unknown]
  - Blood urine present [Unknown]
  - Intentional overdose [Unknown]
  - Product dose omission issue [Unknown]

NARRATIVE: CASE EVENT DATE: 20250731
